FAERS Safety Report 4272330-8 (Version None)
Quarter: 2004Q1

REPORT INFORMATION
  Report Type: 
  Country: None (occurrence: None)
  Receive Date: 20040114
  Receipt Date: 20040109
  Transmission Date: 20041129
  Serious: Yes (Other)
  Sender: FDA-Public Use
  Company Number: 04-01-0029

PATIENT
  Age: 53 Year
  Sex: Female

DRUGS (4)
  1. METRONIDAZOLE [Suspect]
     Dosage: 500MG TDS
     Dates: start: 20031230, end: 20031231
  2. CEFOTAXIME [Concomitant]
  3. ACETAMINOPHEN [Concomitant]
  4. ENOXAPARIN SODIUM [Concomitant]

REACTIONS (3)
  - ANAPHYLACTIC REACTION [None]
  - BRONCHOSPASM [None]
  - RASH [None]
